FAERS Safety Report 23665286 (Version 1)
Quarter: 2024Q1

REPORT INFORMATION
  Report Type: Spontaneous
  Country: US (occurrence: None)
  Receive Date: 20240322
  Receipt Date: 20240322
  Transmission Date: 20240410
  Serious: No
  Sender: FDA-Public Use
  Company Number: 2024A057510

PATIENT
  Sex: Male

DRUGS (1)
  1. BREZTRI [Suspect]
     Active Substance: BUDESONIDE\FORMOTEROL\GLYCOPYRROLATE
     Dosage: 2 PUFFS A DAY
     Route: 055
     Dates: start: 20240304

REACTIONS (6)
  - Poor quality sleep [Unknown]
  - Productive cough [Unknown]
  - Dizziness [Unknown]
  - Headache [Unknown]
  - Chest discomfort [Unknown]
  - Product use issue [Unknown]
